FAERS Safety Report 9939672 (Version 1)
Quarter: 2014Q1

REPORT INFORMATION
  Report Type: Report from Study
  Country: US (occurrence: US)
  Receive Date: 20140303
  Receipt Date: 20140303
  Transmission Date: 20141002
  Serious: No
  Sender: FDA-Public Use
  Company Number: US-ABBVIE-13P-163-1035027-00

PATIENT
  Age: 50 Year
  Sex: Female

DRUGS (3)
  1. HUMIRA [Suspect]
     Indication: CROHN^S DISEASE
     Dosage: LOADING DOSE
     Route: 058
     Dates: start: 20121226, end: 20121226
  2. HUMIRA [Suspect]
     Route: 058
  3. NEXIUM [Concomitant]
     Indication: DYSPEPSIA

REACTIONS (1)
  - Rash [Not Recovered/Not Resolved]
